FAERS Safety Report 9437589 (Version 1)
Quarter: 2013Q3

REPORT INFORMATION
  Report Type: Spontaneous
  Country: US (occurrence: None)
  Receive Date: 20130731
  Receipt Date: 20130731
  Transmission Date: 20140515
  Serious: Yes (Other)
  Sender: FDA-Public Use
  Company Number: SYM-2013-06742

PATIENT
  Age: 58 Year
  Sex: Female
  Weight: 66.68 kg

DRUGS (10)
  1. MESTINON [Suspect]
     Indication: MYASTHENIA GRAVIS
     Route: 048
     Dates: start: 1960, end: 20130709
  2. SPIRIVA (TIOTROPIUM BROMIDE) (TIOTROPIUM BROMIDE) [Concomitant]
  3. ADVAIR (SERETIDE) (FLUTICASONE PROPIONATE, SALMETEROL XINAFOATE) [Concomitant]
  4. DALIRESP (ROFLUMILAST) (ROFLUMILAST) [Concomitant]
  5. PROAIR (SALBUTAMOL SULFATE) (SALBUTAMOL SULFATE) [Concomitant]
  6. THEOPHYLLINE (THEOPHYLLINE) (THEOPHYLLINE) [Concomitant]
  7. MEXILETINE (MEXILETINE) (MEXILETINE) [Concomitant]
  8. TEGRETOL (CARBAMAZEPINE) (CARBAMAZEPINE) [Concomitant]
  9. SINGULAIR [Concomitant]
  10. CLONAZEPAM (CLONAZEPAM) (CLONAZEPAM) [Concomitant]

REACTIONS (5)
  - Alopecia [None]
  - Muscle contractions involuntary [None]
  - Muscle atrophy [None]
  - Formication [None]
  - Vulvovaginal pruritus [None]
